FAERS Safety Report 20165607 (Version 1)
Quarter: 2021Q4

REPORT INFORMATION
  Report Type: Spontaneous
  Country: US (occurrence: US)
  Receive Date: 20211209
  Receipt Date: 20211209
  Transmission Date: 20220303
  Serious: Yes (Other)
  Sender: FDA-Public Use
  Company Number: US-SA-SAC20211208000134

PATIENT
  Sex: Male

DRUGS (4)
  1. TAXOTERE [Suspect]
     Active Substance: DOCETAXEL
     Dosage: 8 CYCLES OF TAXOTERE
  2. TAXOTERE [Suspect]
     Active Substance: DOCETAXEL
     Dosage: UNK
  3. ENZALUTAMIDE [Concomitant]
     Active Substance: ENZALUTAMIDE
  4. TORISEL [Concomitant]
     Active Substance: TEMSIROLIMUS

REACTIONS (3)
  - Fatigue [Unknown]
  - Unevaluable event [Unknown]
  - Rash pruritic [Unknown]
